FAERS Safety Report 11915748 (Version 3)
Quarter: 2016Q3

REPORT INFORMATION
  Report Type: Spontaneous
  Country: US (occurrence: US)
  Receive Date: 20160114
  Receipt Date: 20160714
  Transmission Date: 20161109
  Serious: No
  Sender: FDA-Public Use
  Company Number: US-AMGEN-USASP2016001579

PATIENT
  Age: 69 Year
  Sex: Male

DRUGS (1)
  1. ENBREL [Suspect]
     Active Substance: ETANERCEPT
     Indication: ANKYLOSING SPONDYLITIS
     Dosage: 50 MG,WEEKLY ON MONDAY
     Route: 065
     Dates: start: 2006

REACTIONS (3)
  - Device leakage [Unknown]
  - Incorrect drug administration duration [Unknown]
  - Underdose [Unknown]
